FAERS Safety Report 22921467 (Version 2)
Quarter: 2024Q3

REPORT INFORMATION
  Report Type: Spontaneous
  Country: US (occurrence: None)
  Receive Date: 20230908
  Receipt Date: 20240906
  Transmission Date: 20241016
  Serious: No
  Sender: DOMPE FARMACEUTICI
  Company Number: US-FARMAPROD-202306-1912

PATIENT
  Age: 78 Year
  Sex: Female
  Weight: 59.6 kg

DRUGS (24)
  1. OXERVATE [Suspect]
     Active Substance: CENEGERMIN-BKBJ
     Indication: Neurotrophic keratopathy
     Route: 047
     Dates: start: 20230620
  2. OXERVATE [Suspect]
     Active Substance: CENEGERMIN-BKBJ
  3. CALCIUM 600 + VIT D [Concomitant]
     Dosage: 600 MG-10
  4. TYLENOL EXTRA STRENGTH [Concomitant]
     Active Substance: ACETAMINOPHEN
  5. PREDNISOLONE ACETATE [Concomitant]
     Active Substance: PREDNISOLONE ACETATE
  6. ESOMEPRAZOLE MAGNESIUM [Concomitant]
     Active Substance: ESOMEPRAZOLE MAGNESIUM
  7. ASPIRIN [Concomitant]
     Active Substance: ASPIRIN
  8. ACETAMINOPHEN [Concomitant]
     Active Substance: ACETAMINOPHEN
  9. ACYCLOVIR [Concomitant]
     Active Substance: ACYCLOVIR
  10. ALBUTEROL SULFATE [Concomitant]
     Active Substance: ALBUTEROL SULFATE
     Dosage: HYDROFLUOROALKANE, AEROSOL WITH ADAPTER
  11. BACITRACIN-POLYMYXIN [Concomitant]
     Dosage: 500-10000 / GRAM
  12. PRED FORTE [Concomitant]
     Active Substance: PREDNISOLONE ACETATE
  13. PRALUENT [Concomitant]
     Active Substance: ALIROCUMAB
     Dosage: PEN INJECTOR
  14. FLUTICASONE PROPIONATE [Concomitant]
     Active Substance: FLUTICASONE PROPIONATE
     Dosage: SUSPENSION
  15. SYNTHROID [Concomitant]
     Active Substance: LEVOTHYROXINE SODIUM
  16. CETIRIZINE HCL [Concomitant]
     Active Substance: CETIRIZINE HYDROCHLORIDE
  17. NEXIUM [Concomitant]
     Active Substance: ESOMEPRAZOLE MAGNESIUM
  18. METHOTREXATE [Concomitant]
     Active Substance: METHOTREXATE
  19. FLUOXETINE HYDROCHLORIDE [Concomitant]
     Active Substance: FLUOXETINE HYDROCHLORIDE
  20. DONEPEZIL HYDROCHLORIDE [Concomitant]
     Active Substance: DONEPEZIL HYDROCHLORIDE
  21. POLYETHYLENE GLYCOL 3350 [Concomitant]
     Active Substance: POLYETHYLENE GLYCOL 3350
     Dosage: PACKET
  22. SENOKOT [Concomitant]
     Active Substance: SENNOSIDES
  23. REFRESH CLASSIC [Concomitant]
     Active Substance: POLYVINYL ALCOHOL\POVIDONE
     Dosage: 1.4 %-0.6%
  24. CALCIUM CITRATE [Concomitant]
     Active Substance: CALCIUM CITRATE

REACTIONS (7)
  - Product use complaint [Unknown]
  - Sinusitis [Unknown]
  - Blood glucose decreased [Unknown]
  - Weight fluctuation [Unknown]
  - Wrong technique in product usage process [Unknown]
  - Overdose [Unknown]
  - Product administration error [Unknown]

NARRATIVE: CASE EVENT DATE: 20230620
